FAERS Safety Report 17139797 (Version 1)
Quarter: 2019Q4

REPORT INFORMATION
  Report Type: Spontaneous
  Country: FR (occurrence: FR)
  Receive Date: 20191211
  Receipt Date: 20191211
  Transmission Date: 20200122
  Serious: Yes (Hospitalization)
  Sender: FDA-Public Use
  Company Number: FR-ZYDUS-021672

PATIENT
  Age: 88 Year
  Sex: Male
  Weight: 82.8 kg

DRUGS (7)
  1. FIRMAGON [Concomitant]
     Active Substance: DEGARELIX ACETATE
  2. BACTRIM [Suspect]
     Active Substance: SULFAMETHOXAZOLE\TRIMETHOPRIM
     Indication: PROSTATITIS ESCHERICHIA COLI
     Route: 048
     Dates: start: 20171204, end: 20171219
  3. ACICLOVIR [Suspect]
     Active Substance: ACYCLOVIR
     Indication: PRODUCT USED FOR UNKNOWN INDICATION
     Dosage: 5% CREAM
     Route: 003
     Dates: start: 20171207, end: 20171213
  4. FRAGMINE [Suspect]
     Active Substance: DALTEPARIN SODIUM
     Indication: THROMBOSIS PROPHYLAXIS
     Route: 003
     Dates: start: 20171204, end: 20171211
  5. DIFFU K [Suspect]
     Active Substance: POTASSIUM CHLORIDE
     Indication: HYPOKALAEMIA
     Route: 048
     Dates: start: 20171211, end: 20171216
  6. XATRAL LP [Suspect]
     Active Substance: ALFUZOSIN
     Indication: MICTURITION DISORDER
     Route: 048
     Dates: start: 20171205, end: 20171220
  7. MODURETIC 5-50 [Concomitant]
     Active Substance: AMILORIDE HYDROCHLORIDE\HYDROCHLOROTHIAZIDE
     Dosage: TABLET BREACKABLE

REACTIONS (1)
  - Pancytopenia [Recovered/Resolved]

NARRATIVE: CASE EVENT DATE: 20171219
